FAERS Safety Report 20059665 (Version 1)
Quarter: 2021Q4

REPORT INFORMATION
  Report Type: Spontaneous
  Country: US (occurrence: US)
  Receive Date: 20211111
  Receipt Date: 20211111
  Transmission Date: 20220303
  Serious: Yes (Hospitalization, Other)
  Sender: FDA-Public Use
  Company Number: US-HORIZON THERAPEUTICS-HZN-2021-008693

PATIENT

DRUGS (2)
  1. RAYOS [Suspect]
     Active Substance: PREDNISONE
     Indication: Pneumonia
     Dosage: UNK
     Route: 065
  2. FLUCONAZOLE [Concomitant]
     Active Substance: FLUCONAZOLE
     Indication: Product used for unknown indication

REACTIONS (4)
  - Pneumothorax [Recovered/Resolved]
  - Coccidioidomycosis [Recovered/Resolved]
  - Pneumonia necrotising [Recovered/Resolved]
  - Diabetes mellitus inadequate control [Recovered/Resolved]
